FAERS Safety Report 21397556 (Version 1)
Quarter: 2022Q3

REPORT INFORMATION
  Report Type: Spontaneous
  Country: IN (occurrence: IN)
  Receive Date: 20220930
  Receipt Date: 20220930
  Transmission Date: 20221026
  Serious: Yes (Hospitalization)
  Sender: FDA-Public Use
  Company Number: IN-PFIZER INC-2021727928

PATIENT
  Age: 59 Year
  Sex: Male

DRUGS (2)
  1. SUTENT [Suspect]
     Active Substance: SUNITINIB MALATE
     Indication: Metastatic renal cell carcinoma
     Dosage: 50 MG, CYCLIC(ONCE A DAY, 2 WEEKS ON 1 WEEK OFF)
     Route: 048
     Dates: start: 20210615
  2. SUTENT [Suspect]
     Active Substance: SUNITINIB MALATE
     Dosage: 50 MG 1 WEEK ON/1 WEEK OFF/FOR 2 WEEK
     Route: 048

REACTIONS (6)
  - Platelet count decreased [Recovered/Resolved]
  - Blood sodium decreased [Recovered/Resolved]
  - Blood potassium abnormal [Recovered/Resolved]
  - General physical condition abnormal [Unknown]
  - Off label use [Unknown]
  - Product use issue [Unknown]
